FAERS Safety Report 14765381 (Version 2)
Quarter: 2019Q1

REPORT INFORMATION
  Report Type: Spontaneous
  Country: CA (occurrence: CA)
  Receive Date: 20180416
  Receipt Date: 20190104
  Transmission Date: 20190417
  Serious: Yes (Life-Threatening, Hospitalization)
  Sender: FDA-Public Use
  Company Number: CA-TEVA-2018-CA-879938

PATIENT
  Age: 78 Year
  Sex: Female
  Weight: 60 kg

DRUGS (11)
  1. DIAMICRON MR [Concomitant]
     Active Substance: GLICLAZIDE
  2. FOLIC ACID. [Concomitant]
     Active Substance: FOLIC ACID
  3. TUMS [Concomitant]
     Active Substance: CALCIUM CARBONATE
  4. METFORMIN [Suspect]
     Active Substance: METFORMIN HYDROCHLORIDE
     Indication: DIABETES MELLITUS
     Route: 048
  5. ASA [Concomitant]
     Active Substance: ASPIRIN
  6. TRAJENTA [Concomitant]
     Active Substance: LINAGLIPTIN
  7. ABBOTT-CALCITRIOL [Concomitant]
  8. SENSIPAR [Concomitant]
     Active Substance: CINACALCET HYDROCHLORIDE
  9. MULTIVITAMINS [Concomitant]
     Active Substance: VITAMINS
  10. MEGESTROL [Concomitant]
     Active Substance: MEGESTROL
  11. ATORVASTATIN CALCIUM. [Concomitant]
     Active Substance: ATORVASTATIN CALCIUM

REACTIONS (3)
  - Confusional state [Not Recovered/Not Resolved]
  - Lactic acidosis [Not Recovered/Not Resolved]
  - Hypoglycaemia [Not Recovered/Not Resolved]
